FAERS Safety Report 7321103-8 (Version None)
Quarter: 2011Q1

REPORT INFORMATION
  Report Type: 
  Country: None (occurrence: None)
  Receive Date: 20110228
  Receipt Date: 20110218
  Transmission Date: 20110831
  Serious: Yes (Other)
  Sender: FDA-Public Use
  Company Number: US-JNJFOC-20110206837

PATIENT
  Sex: Male

DRUGS (2)
  1. OXYCODONE [Suspect]
     Indication: ARTHRALGIA
     Dosage: AS NEEDED
     Route: 048
  2. FENTANYL-100 [Suspect]
     Indication: ARTHRALGIA
     Route: 062

REACTIONS (3)
  - RENAL IMPAIRMENT [None]
  - INCOHERENT [None]
  - INAPPROPRIATE SCHEDULE OF DRUG ADMINISTRATION [None]
